FAERS Safety Report 8708622 (Version 2)
Quarter: 2012Q4

REPORT INFORMATION
  Report Type: Report from Study
  Country: US (occurrence: US)
  Receive Date: 20120806
  Receipt Date: 20120830
  Transmission Date: 20130627
  Serious: Yes (Death)
  Sender: FDA-Public Use
  Company Number: US-ASTELLAS-2012US006257

PATIENT
  Age: 67 None
  Sex: Female

DRUGS (1)
  1. ERLOTINIB TABLET [Suspect]
     Indication: NON-SMALL CELL LUNG CANCER METASTATIC
     Dosage: 150 mg, UID/QD
     Route: 048
     Dates: start: 20120620, end: 20120711

REACTIONS (1)
  - Non-small cell lung cancer metastatic [Fatal]
